FAERS Safety Report 14262638 (Version 1)
Quarter: 2017Q4

REPORT INFORMATION
  Report Type: Spontaneous
  Country: US (occurrence: US)
  Receive Date: 20171208
  Receipt Date: 20171208
  Transmission Date: 20180321
  Serious: No
  Sender: FDA-Public Use
  Company Number: US-PFIZER INC-2017525016

PATIENT
  Age: 14 Year
  Sex: Male

DRUGS (1)
  1. ADVIL MIGRAINE [Suspect]
     Active Substance: IBUPROFEN

REACTIONS (3)
  - Malaise [Unknown]
  - Intentional product misuse [Unknown]
  - Chest pain [Unknown]
